FAERS Safety Report 8142802-4 (Version None)
Quarter: 2012Q1

REPORT INFORMATION
  Report Type: 
  Country: None (occurrence: None)
  Receive Date: 20120216
  Receipt Date: 20120213
  Transmission Date: 20120608
  Serious: Yes (Hospitalization)
  Sender: FDA-Public Use
  Company Number: CN-MERCK-1202CHN00083

PATIENT
  Age: 80 Year
  Sex: Male

DRUGS (2)
  1. PROSCAR [Suspect]
     Route: 048
     Dates: start: 20120204
  2. PROSCAR [Suspect]
     Indication: BENIGN PROSTATIC HYPERPLASIA
     Route: 048
     Dates: start: 20110101, end: 20120124

REACTIONS (3)
  - NOCTURIA [None]
  - PYREXIA [None]
  - HAEMATURIA [None]
